FAERS Safety Report 13301717 (Version 1)
Quarter: 2017Q1

REPORT INFORMATION
  Report Type: Spontaneous
  Country: HU (occurrence: HU)
  Receive Date: 20170307
  Receipt Date: 20170307
  Transmission Date: 20170428
  Serious: Yes (Other)
  Sender: FDA-Public Use
  Company Number: HU-BAXTER-2017BAX009204

PATIENT
  Age: 27 Year
  Sex: Male
  Weight: 65 kg

DRUGS (31)
  1. PANADOL [Concomitant]
     Active Substance: ACETAMINOPHEN
     Indication: PRODUCT USED FOR UNKNOWN INDICATION
     Route: 065
  2. VANCOCIN [Concomitant]
     Active Substance: VANCOMYCIN HYDROCHLORIDE
     Indication: TONSILLITIS
  3. MYCOSYST [Concomitant]
     Active Substance: FLUCONAZOLE
     Indication: FEBRILE NEUTROPENIA
     Route: 065
  4. HOLOXAN 2000 MG POR OLDATOS INJEKCI?HOZ [Suspect]
     Active Substance: IFOSFAMIDE
     Dosage: ICE CHEMOTHERAPY SECOND COURSE
     Route: 042
     Dates: start: 20161129, end: 20161213
  5. CARBOPLATIN. [Suspect]
     Active Substance: CARBOPLATIN
     Dosage: ICE CHEMOTHERAPY SECOND COURSE
     Route: 042
     Dates: start: 20161129, end: 20161213
  6. MERONEM [Concomitant]
     Active Substance: MEROPENEM
     Indication: FEBRILE NEUTROPENIA
     Route: 065
  7. MERONEM [Concomitant]
     Active Substance: MEROPENEM
     Indication: SOFT TISSUE INFECTION
  8. VANCOCIN [Concomitant]
     Active Substance: VANCOMYCIN HYDROCHLORIDE
     Indication: GROIN INFECTION
  9. BENDAMUSTINE [Suspect]
     Active Substance: BENDAMUSTINE
     Indication: HISTIOCYTIC SARCOMA
     Dosage: ONE COURSE
     Route: 042
     Dates: start: 20161222, end: 20170106
  10. VANCOCIN [Concomitant]
     Active Substance: VANCOMYCIN HYDROCHLORIDE
     Indication: SOFT TISSUE INFECTION
  11. TELVIRAN [Concomitant]
     Indication: FEBRILE NEUTROPENIA
     Route: 065
  12. CYTOSAR [Suspect]
     Active Substance: CYTARABINE
     Dosage: 5 TIMES, FLAG-IDA + VEPESIDE CHEMOTHERAPY TREATMENT
     Route: 042
     Dates: start: 20160923, end: 20161013
  13. ZAVEDOS [Suspect]
     Active Substance: IDARUBICIN
     Dosage: 3 TIMES, FLAG-IDA + VEPESIDE CHEMOTHERAPY TREATMENT
     Route: 042
     Dates: start: 20160923, end: 20161013
  14. GEMZAR [Suspect]
     Active Substance: GEMCITABINE HYDROCHLORIDE
     Indication: HISTIOCYTIC SARCOMA
     Dosage: ONE COURSE
     Route: 042
     Dates: start: 20161222, end: 20170106
  15. BISOPROLOL [Concomitant]
     Active Substance: BISOPROLOL
     Indication: PRODUCT USED FOR UNKNOWN INDICATION
     Route: 065
  16. DUROGESIC [Concomitant]
     Active Substance: FENTANYL
     Indication: PRODUCT USED FOR UNKNOWN INDICATION
     Route: 065
  17. MERONEM [Concomitant]
     Active Substance: MEROPENEM
     Indication: TONSILLITIS
  18. G-CSF [Suspect]
     Active Substance: GRANULOCYTE COLONY-STIMULATING FACTOR NOS
     Indication: ACUTE MYELOID LEUKAEMIA
     Dosage: ONE TIME, FLAG-IDA CHEMOTHERAPY TREATMENT
     Route: 065
     Dates: start: 20160806, end: 20160905
  19. VEPESIDE [Suspect]
     Active Substance: ETOPOSIDE
     Indication: HISTIOCYTIC SARCOMA
     Dosage: ICE CHEMOTHERAPY FIRST COURSE
     Route: 042
     Dates: start: 20161101, end: 20161121
  20. CARBOPLATIN. [Suspect]
     Active Substance: CARBOPLATIN
     Indication: HISTIOCYTIC SARCOMA
     Dosage: ICE CHEMOTHERAPY FIRST COURSE
     Route: 042
     Dates: start: 20161101, end: 20161121
  21. ALLOPURINOL. [Concomitant]
     Active Substance: ALLOPURINOL
     Indication: PRODUCT USED FOR UNKNOWN INDICATION
     Route: 065
  22. VANCOCIN [Concomitant]
     Active Substance: VANCOMYCIN HYDROCHLORIDE
     Indication: FEBRILE NEUTROPENIA
     Route: 065
  23. CYTOSAR [Suspect]
     Active Substance: CYTARABINE
     Indication: ACUTE MYELOID LEUKAEMIA
     Dosage: 5 TIMES, FLAG-IDA CHEMOTHERAPY TREATMENT
     Route: 042
     Dates: start: 20160806, end: 20160905
  24. ZAVEDOS [Suspect]
     Active Substance: IDARUBICIN
     Indication: ACUTE MYELOID LEUKAEMIA
     Dosage: 3 TIMES, FLAG-IDA CHEMOTHERAPY TREATMENT
     Route: 042
     Dates: start: 20160806, end: 20160905
  25. G-CSF [Suspect]
     Active Substance: GRANULOCYTE COLONY-STIMULATING FACTOR NOS
     Dosage: 1 TIME, FLAG-IDA + VEPESIDE CHEMOTHERAPY TREATMENT
     Route: 065
     Dates: start: 20160923, end: 20161013
  26. VEPESIDE [Suspect]
     Active Substance: ETOPOSIDE
     Dosage: ICE CHEMOTHERAPY SECOND COURSE
     Route: 042
     Dates: start: 20161129, end: 20161213
  27. MERONEM [Concomitant]
     Active Substance: MEROPENEM
     Indication: GROIN INFECTION
  28. HOLOXAN 2000 MG POR OLDATOS INJEKCI?HOZ [Suspect]
     Active Substance: IFOSFAMIDE
     Indication: HISTIOCYTIC SARCOMA
     Dosage: ICE CHEMOTHERAPY FIRST COURSE
     Route: 042
     Dates: start: 20161101, end: 20161121
  29. FLUDARA [Suspect]
     Active Substance: FLUDARABINE PHOSPHATE
     Indication: ACUTE MYELOID LEUKAEMIA
     Dosage: 5 TIMES, FLAG-IDA CHEMOTHERAPY TREATMENT
     Route: 042
     Dates: start: 20160806, end: 20160905
  30. FLUDARA [Suspect]
     Active Substance: FLUDARABINE PHOSPHATE
     Dosage: 5 TIMES, FLAG-IDA + VEPESIDE CHEMOTHERAPY TREATMENT
     Route: 042
     Dates: start: 20160923, end: 20161013
  31. VEPESIDE [Suspect]
     Active Substance: ETOPOSIDE
     Indication: ACUTE MYELOID LEUKAEMIA
     Dosage: 2 TIMES, FLAG-IDA + VEPESIDE CHEMOTHERAPY TREATMENT
     Route: 042
     Dates: start: 20160923, end: 20161013

REACTIONS (3)
  - Inappropriate antidiuretic hormone secretion [Recovered/Resolved]
  - Hypochloraemia [Recovered/Resolved]
  - Therapy non-responder [Unknown]

NARRATIVE: CASE EVENT DATE: 201611
